FAERS Safety Report 26141902 (Version 1)
Quarter: 2025Q4

REPORT INFORMATION
  Report Type: Report from Study
  Country: CN (occurrence: CN)
  Receive Date: 20251210
  Receipt Date: 20251210
  Transmission Date: 20260117
  Serious: Yes (Other)
  Sender: VERITY PHARMACEUTICALS INC.
  Company Number: CN-VER-202500051

PATIENT

DRUGS (1)
  1. TRIPTORELIN [Suspect]
     Active Substance: TRIPTORELIN
     Indication: Foetal exposure during pregnancy
     Dosage: POWDER AND SOLVENT FOR SUSPENSION FOR INJECTION
     Route: 064

REACTIONS (1)
  - Premature baby [Unknown]
